FAERS Safety Report 14037582 (Version 1)
Quarter: 2017Q4

REPORT INFORMATION
  Report Type: Spontaneous
  Country: US (occurrence: US)
  Receive Date: 20171003
  Receipt Date: 20171003
  Transmission Date: 20180321
  Serious: Yes (Other)
  Sender: FDA-Public Use
  Company Number: None

PATIENT
  Age: 37 Year
  Sex: Female
  Weight: 101.6 kg

DRUGS (8)
  1. VERAMYST [Concomitant]
     Active Substance: FLUTICASONE FUROATE
  2. XARELTO [Suspect]
     Active Substance: RIVAROXABAN
     Indication: DEEP VEIN THROMBOSIS
     Route: 048
     Dates: start: 20170223, end: 20170228
  3. MULTIVITAMIN [Concomitant]
     Active Substance: VITAMINS
  4. PHENTERMINE. [Concomitant]
     Active Substance: PHENTERMINE
  5. ZYRTEC [Concomitant]
     Active Substance: CETIRIZINE HYDROCHLORIDE
  6. MINOXIDIL. [Concomitant]
     Active Substance: MINOXIDIL
  7. ALBUTEROL. [Concomitant]
     Active Substance: ALBUTEROL
  8. MONTELUKAST [Concomitant]
     Active Substance: MONTELUKAST SODIUM

REACTIONS (3)
  - Dyspnoea [None]
  - Chest pain [None]
  - Palpitations [None]

NARRATIVE: CASE EVENT DATE: 20170228
